FAERS Safety Report 4873853-0 (Version None)
Quarter: 2006Q1

REPORT INFORMATION
  Report Type: 
  Country: None (occurrence: None)
  Receive Date: 20060104
  Receipt Date: 20051220
  Transmission Date: 20060701
  Serious: Yes (Hospitalization)
  Sender: FDA-Public Use
  Company Number: 2005RL000200

PATIENT
  Age: 47 Year
  Sex: Male
  Weight: 98.8842 kg

DRUGS (8)
  1. RYTHMOL [Suspect]
     Indication: ATRIAL FIBRILLATION
     Dosage: 150 MG, TID, PO
     Route: 048
     Dates: start: 20051030, end: 20051125
  2. DILTIAZEM HCL [Concomitant]
  3. METOPROLOL SUCCINATE [Concomitant]
  4. WARFARIN SODIUM [Concomitant]
  5. ASPIRIN [Concomitant]
  6. PRILOSEC [Concomitant]
  7. ZOCOR [Concomitant]
  8. PLAVIX [Concomitant]

REACTIONS (1)
  - CORONARY ARTERY OCCLUSION [None]
